FAERS Safety Report 7558211-2 (Version None)
Quarter: 2011Q2

REPORT INFORMATION
  Report Type: 
  Country: None (occurrence: None)
  Receive Date: 20110620
  Receipt Date: 20110608
  Transmission Date: 20111010
  Serious: Yes (Other)
  Sender: FDA-Public Use
  Company Number: US-ELI_LILLY_AND_COMPANY-US201105005563

PATIENT
  Sex: Female

DRUGS (3)
  1. LANTUS [Concomitant]
  2. HUMALOG [Suspect]
     Dosage: UNK UNK, PRN
  3. HUMALOG [Suspect]
     Indication: DIABETES MELLITUS
     Dosage: 6 U, TID

REACTIONS (8)
  - DIABETIC GANGRENE [None]
  - AMPUTATION [None]
  - UNDERDOSE [None]
  - WRONG TECHNIQUE IN DRUG USAGE PROCESS [None]
  - VASCULAR OCCLUSION [None]
  - DEVICE MALFUNCTION [None]
  - FEELING ABNORMAL [None]
  - VISUAL IMPAIRMENT [None]
